FAERS Safety Report 11877345 (Version 1)
Quarter: 2015Q4

REPORT INFORMATION
  Report Type: Spontaneous
  Country: US (occurrence: US)
  Receive Date: 20151229
  Receipt Date: 20151229
  Transmission Date: 20160305
  Serious: No
  Sender: FDA-Public Use
  Company Number: US-CELGENEUS-USA-2015124343

PATIENT
  Sex: Female

DRUGS (1)
  1. THALOMID [Suspect]
     Active Substance: THALIDOMIDE
     Indication: PLASMACYTOMA
     Dosage: 200 MILLIGRAM
     Route: 048
     Dates: start: 201503

REACTIONS (1)
  - Nerve injury [Unknown]

NARRATIVE: CASE EVENT DATE: 2015
